FAERS Safety Report 4492375-2 (Version None)
Quarter: 2004Q4

REPORT INFORMATION
  Report Type: 
  Country: None (occurrence: None)
  Receive Date: 20041029
  Receipt Date: 20041018
  Transmission Date: 20050328
  Serious: Yes (Hospitalization)
  Sender: FDA-Public Use
  Company Number: 2004-BP-09275BP

PATIENT
  Age: 73 Year
  Sex: Female

DRUGS (11)
  1. CATAPRES [Suspect]
     Indication: HYPERTENSION
     Dosage: 0.2 MG (5 MG, 1 PATCH WEEKLY), TO
     Route: 061
     Dates: start: 20040812
  2. GLIPIZIDE [Concomitant]
  3. CLONIDINE [Concomitant]
  4. POTASSIUM CHLORIDE [Concomitant]
  5. ARICEPT [Concomitant]
  6. PLAVIX [Concomitant]
  7. ASPIRIN [Concomitant]
  8. LABETALOL HCL [Concomitant]
  9. ZOCOR [Concomitant]
  10. FESOSOL (FERROUS SULFATE) [Concomitant]
  11. PROCARDIA XL [Concomitant]

REACTIONS (4)
  - APPLICATION SITE ERYTHEMA [None]
  - GALLBLADDER DISORDER [None]
  - GASTROINTESTINAL NEOPLASM [None]
  - NEOPLASM [None]
